FAERS Safety Report 18221772 (Version 1)
Quarter: 2020Q3

REPORT INFORMATION
  Report Type: Spontaneous
  Country: CA (occurrence: CA)
  Receive Date: 20200902
  Receipt Date: 20200902
  Transmission Date: 20201103
  Serious: Yes (Other)
  Sender: FDA-Public Use
  Company Number: CA-ACCORD-198457

PATIENT
  Age: 23 Year
  Sex: Female

DRUGS (12)
  1. HAEMOPHILUS INFLUENZAE [Concomitant]
     Active Substance: HAEMOPHILUS INFLUENZAE TYPE B
     Indication: PRODUCT USED FOR UNKNOWN INDICATION
     Route: 065
  2. MYCOPHENOLIC ACID. [Suspect]
     Active Substance: MYCOPHENOLIC ACID
     Indication: IMMUNOSUPPRESSION
     Dosage: 2 EVERY 1 DAYS
     Route: 065
  3. OLMESARTAN/OLMESARTAN MEDOXOMIL [Concomitant]
     Active Substance: OLMESARTAN MEDOXOMIL
     Indication: PRODUCT USED FOR UNKNOWN INDICATION
     Route: 065
  4. CYANOCOBALAMIN. [Concomitant]
     Active Substance: CYANOCOBALAMIN
     Indication: PRODUCT USED FOR UNKNOWN INDICATION
     Route: 065
  5. HYDROXYCHLOROQUINE [Concomitant]
     Active Substance: HYDROXYCHLOROQUINE
     Indication: PRODUCT USED FOR UNKNOWN INDICATION
     Route: 065
  6. PREDNISONE. [Suspect]
     Active Substance: PREDNISONE
     Indication: IMMUNOSUPPRESSION
     Route: 065
  7. MENINGOCOCCAL VACCINE POLYSACCHARIDE (NOS) [Concomitant]
     Active Substance: MENINGOCOCCAL POLYSACCHARIDE VACCINE, GROUPS A, C, Y,W135 COMBINED
     Indication: PRODUCT USED FOR UNKNOWN INDICATION
     Dosage: MENINGOCOCCAL VACCINE CONJ
     Route: 065
  8. ECULIZUMAB [Suspect]
     Active Substance: ECULIZUMAB
     Indication: ATYPICAL HAEMOLYTIC URAEMIC SYNDROME
     Route: 065
  9. CALCIUM CARBONATE. [Concomitant]
     Active Substance: CALCIUM CARBONATE
     Indication: PRODUCT USED FOR UNKNOWN INDICATION
     Route: 065
  10. STREPTOCOCCUS PYOGENES [Concomitant]
     Active Substance: STREPTOCOCCUS PYOGENES
     Indication: PRODUCT USED FOR UNKNOWN INDICATION
     Dosage: STREPTOCOCCUS (DIPLOCOCCUS)?PNEUMONIAE
     Route: 065
  11. ASCORBIC ACID. [Concomitant]
     Active Substance: ASCORBIC ACID
     Indication: PRODUCT USED FOR UNKNOWN INDICATION
     Route: 065
  12. BISOPROLOL [Concomitant]
     Active Substance: BISOPROLOL
     Indication: PRODUCT USED FOR UNKNOWN INDICATION

REACTIONS (2)
  - Bacteraemia [Recovered/Resolved]
  - Gonorrhoea [Recovered/Resolved]
